FAERS Safety Report 5910641-8 (Version None)
Quarter: 2008Q4

REPORT INFORMATION
  Report Type: 
  Country: None (occurrence: None)
  Receive Date: 20081007
  Receipt Date: 20081001
  Transmission Date: 20090506
  Serious: Yes (Hospitalization)
  Sender: FDA-Public Use
  Company Number: US-AVENTIS-200818008GDDC

PATIENT
  Age: 74 Year
  Sex: Male
  Weight: 131.1 kg

DRUGS (4)
  1. TAXOTERE [Suspect]
     Route: 042
     Dates: start: 20080729, end: 20080819
  2. PREDNISONE TAB [Suspect]
     Route: 048
     Dates: start: 20080729, end: 20080822
  3. CODE UNBROKEN [Suspect]
     Route: 048
     Dates: start: 20080729, end: 20080821
  4. DEXAMETHASONE [Suspect]
     Indication: PREMEDICATION
     Route: 042
     Dates: start: 20080729, end: 20080819

REACTIONS (11)
  - ABDOMINAL PAIN [None]
  - ANOREXIA [None]
  - ATRIAL FIBRILLATION [None]
  - BLOOD CREATININE INCREASED [None]
  - DYSPHAGIA [None]
  - HAEMOGLOBIN DECREASED [None]
  - OEDEMA PERIPHERAL [None]
  - RENAL FAILURE ACUTE [None]
  - SEPSIS [None]
  - SINUS BRADYCARDIA [None]
  - URINARY BLADDER HAEMORRHAGE [None]
